FAERS Safety Report 14191839 (Version 2)
Quarter: 2018Q1

REPORT INFORMATION
  Report Type: Report from Study
  Country: US (occurrence: US)
  Receive Date: 20171115
  Receipt Date: 20180104
  Transmission Date: 20180508
  Serious: Yes (Hospitalization)
  Sender: FDA-Public Use
  Company Number: US-BIOGEN-2017BI00483680

PATIENT
  Age: 59 Year
  Sex: Female

DRUGS (49)
  1. CALCIUM CITRATE PLUS VITAMIN D [Concomitant]
     Dosage: 50 MCG/ACT; 2 SPRAYS PER NOSTRIL
     Route: 045
  2. COLACE [Concomitant]
     Active Substance: DOCUSATE SODIUM
     Dosage: 50 MCG/ACT; 2 SPRAYS PER NOSTRIL
     Route: 045
  3. BIOTIN [Concomitant]
     Active Substance: BIOTIN
     Indication: PRODUCT USED FOR UNKNOWN INDICATION
     Dosage: WITH ARGON OIL 5000 MG AND WITH A 10000 MG OF UNVERIFIED COLLAGEN
     Route: 065
  4. ERYTHROMYCIN. [Concomitant]
     Active Substance: ERYTHROMYCIN
     Indication: PRODUCT USED FOR UNKNOWN INDICATION
     Dosage: 5 MG/GM
     Route: 047
  5. MELATONIN [Concomitant]
     Active Substance: MELATONIN
     Indication: PRODUCT USED FOR UNKNOWN INDICATION
     Route: 065
  6. MELATONIN [Concomitant]
     Active Substance: MELATONIN
     Dosage: 55 MCG/ACT PER NOSTRIL
     Route: 045
  7. MECLIZINE HCL [Concomitant]
     Active Substance: MECLIZINE HYDROCHLORIDE
     Indication: VERTIGO
     Dosage: AS NEEDED
     Route: 065
  8. FERROUS SULFATE. [Concomitant]
     Active Substance: FERROUS SULFATE
     Indication: PRODUCT USED FOR UNKNOWN INDICATION
     Route: 065
  9. MAGNESIUM [Concomitant]
     Active Substance: MAGNESIUM
     Dosage: 50 MCG/ACT; 2 SPRAYS PER NOSTRIL
     Route: 045
  10. ASCORBIC ACID. [Concomitant]
     Active Substance: ASCORBIC ACID
     Indication: PRODUCT USED FOR UNKNOWN INDICATION
     Route: 048
  11. CITRACEL AND CITRUCEL [Concomitant]
     Dosage: 2
     Route: 065
  12. MELATONIN [Concomitant]
     Active Substance: MELATONIN
     Dosage: 50 MCG/ACT; 2 SPRAYS PER NOSTRIL
     Route: 045
  13. TYLENOL [Concomitant]
     Active Substance: ACETAMINOPHEN
     Dosage: 50 MCG/ACT; 2 SPRAYS PER NOSTRIL
     Route: 045
  14. TECFIDERA [Suspect]
     Active Substance: DIMETHYL FUMARATE
     Route: 048
     Dates: start: 20171030, end: 20171201
  15. FLONASE [Concomitant]
     Active Substance: FLUTICASONE PROPIONATE
     Dosage: 50 MCG/ACT; 2 SPRAYS PER NOSTRIL
     Route: 045
  16. NASACORT ALLERGY 24HR [Concomitant]
     Active Substance: TRIAMCINOLONE ACETONIDE
     Indication: PRODUCT USED FOR UNKNOWN INDICATION
     Dosage: 55 MCG/ACT; 2 SPRAYS PER NOSTRIL
     Route: 045
  17. ASCORBIC ACID. [Concomitant]
     Active Substance: ASCORBIC ACID
     Dosage: 55 MCG/ACT PER NOSTRIL
     Route: 045
  18. FISHOIL [Concomitant]
     Route: 065
  19. COLACE [Concomitant]
     Active Substance: DOCUSATE SODIUM
     Indication: PRODUCT USED FOR UNKNOWN INDICATION
     Route: 065
  20. COLACE [Concomitant]
     Active Substance: DOCUSATE SODIUM
     Dosage: 55 MCG/ACT PER NOSTRIL
     Route: 045
  21. BIOTIN [Concomitant]
     Active Substance: BIOTIN
     Dosage: 55 MCG/ACT PER NOSTRIL
     Route: 045
  22. MUPIROCIN. [Concomitant]
     Active Substance: MUPIROCIN
     Indication: PRODUCT USED FOR UNKNOWN INDICATION
     Route: 065
  23. MUPIROCIN. [Concomitant]
     Active Substance: MUPIROCIN
     Dosage: 55 MCG/ACT PER NOSTRIL
     Route: 045
  24. NASACORT ALLERGY 24HR [Concomitant]
     Active Substance: TRIAMCINOLONE ACETONIDE
     Dosage: 55 MCG/ACT PER NOSTRIL
     Route: 045
  25. NASACORT ALLERGY 24HR [Concomitant]
     Active Substance: TRIAMCINOLONE ACETONIDE
     Dosage: 50 MCG/ACT; 2 SPRAYS PER NOSTRIL
     Route: 045
  26. CALCIUM CITRATE PLUS VITAMIN D [Concomitant]
     Indication: PRODUCT USED FOR UNKNOWN INDICATION
     Route: 065
  27. CALCIUM CITRATE PLUS VITAMIN D [Concomitant]
     Dosage: 55 MCG/ACT PER NOSTRIL
     Route: 045
  28. BIOTIN [Concomitant]
     Active Substance: BIOTIN
     Dosage: 50 MCG/ACT; 2 SPRAYS PER NOSTRIL
     Route: 045
  29. TYLENOL [Concomitant]
     Active Substance: ACETAMINOPHEN
     Dosage: 55 MCG/ACT PER NOSTRIL
     Route: 045
  30. CELEXA [Concomitant]
     Active Substance: CITALOPRAM HYDROBROMIDE
     Indication: DEPRESSION
     Dosage: 20
  31. FLONASE [Concomitant]
     Active Substance: FLUTICASONE PROPIONATE
     Dosage: 55 MCG/ACT PER NOSTRIL
     Route: 045
  32. MAGNESIUM [Concomitant]
     Active Substance: MAGNESIUM
     Indication: PRODUCT USED FOR UNKNOWN INDICATION
     Route: 048
  33. MAGNESIUM [Concomitant]
     Active Substance: MAGNESIUM
     Dosage: 55 MCG/ACT PER NOSTRIL
     Route: 045
  34. ERYTHROMYCIN. [Concomitant]
     Active Substance: ERYTHROMYCIN
     Dosage: 55 MCG/ACT PER NOSTRIL
     Route: 045
  35. TYLENOL [Concomitant]
     Active Substance: ACETAMINOPHEN
     Indication: PRODUCT USED FOR UNKNOWN INDICATION
     Route: 065
  36. TOPIRAMATE. [Concomitant]
     Active Substance: TOPIRAMATE
     Indication: PRODUCT USED FOR UNKNOWN INDICATION
     Route: 048
  37. CHOLECALCIFEROL [Concomitant]
     Active Substance: CHOLECALCIFEROL
     Indication: PRODUCT USED FOR UNKNOWN INDICATION
     Route: 065
  38. CHOLECALCIFEROL [Concomitant]
     Active Substance: CHOLECALCIFEROL
     Dosage: 55 MCG/ACT PER NOSTRIL
     Route: 045
  39. CHOLECALCIFEROL [Concomitant]
     Active Substance: CHOLECALCIFEROL
     Dosage: 50 MCG/ACT; 2 SPRAYS PER NOSTRIL
     Route: 045
  40. ERYTHROMYCIN. [Concomitant]
     Active Substance: ERYTHROMYCIN
     Dosage: 50 MCG/ACT; 2 SPRAYS PER NOSTRIL
     Route: 045
  41. TECFIDERA [Suspect]
     Active Substance: DIMETHYL FUMARATE
     Indication: MULTIPLE SCLEROSIS
     Dosage: MAINTENANCE DOSE
     Route: 048
     Dates: start: 2014
  42. TOPAMAX [Concomitant]
     Active Substance: TOPIRAMATE
     Indication: HEADACHE
     Route: 065
  43. CITALOPRAM HYDROBROMIDE. [Concomitant]
     Active Substance: CITALOPRAM HYDROBROMIDE
     Indication: PRODUCT USED FOR UNKNOWN INDICATION
     Route: 048
  44. FLONASE [Concomitant]
     Active Substance: FLUTICASONE PROPIONATE
     Indication: PRODUCT USED FOR UNKNOWN INDICATION
     Dosage: 50 MCG/ACT; 2 SPRAYS PER NOSTRIL
     Route: 045
  45. ASCORBIC ACID. [Concomitant]
     Active Substance: ASCORBIC ACID
     Dosage: 50 MCG/ACT; 2 SPRAYS PER NOSTRIL
     Route: 045
  46. FISHOIL [Concomitant]
     Indication: PRODUCT USED FOR UNKNOWN INDICATION
     Route: 065
  47. CITRACEL AND CITRUCEL [Concomitant]
     Dosage: 55 MCG/ACT PER NOSTRIL
     Route: 045
  48. CITRACEL AND CITRUCEL [Concomitant]
     Dosage: 50 MCG/ACT; 2 SPRAYS PER NOSTRIL
     Route: 045
  49. MUPIROCIN. [Concomitant]
     Active Substance: MUPIROCIN
     Dosage: 50 MCG/ACT; 2 SPRAYS PER NOSTRIL
     Route: 045

REACTIONS (6)
  - Balance disorder [Unknown]
  - Feeling abnormal [Unknown]
  - Decreased appetite [Not Recovered/Not Resolved]
  - Dizziness [Unknown]
  - Oedema peripheral [Unknown]
  - Tinnitus [Unknown]

NARRATIVE: CASE EVENT DATE: 20170628
